FAERS Safety Report 21403403 (Version 1)
Quarter: 2022Q4

REPORT INFORMATION
  Report Type: Spontaneous
  Country: US (occurrence: None)
  Receive Date: 20221001
  Receipt Date: 20221001
  Transmission Date: 20230112
  Serious: Yes (unspecified)
  Sender: FDA-Public Use
  Company Number: None

PATIENT
  Age: 44 Year
  Sex: Female
  Weight: 63 kg

DRUGS (1)
  1. MAGNESIUM CITRATE LEMON [Suspect]
     Active Substance: MAGNESIUM CITRATE
     Indication: Bowel preparation
     Dosage: OTHER QUANTITY : 10 OUNCE(S);?
     Route: 048
     Dates: start: 20220906, end: 20220906

REACTIONS (6)
  - Paraesthesia [None]
  - Hypoaesthesia [None]
  - Anaemia [None]
  - Colitis [None]
  - Product contamination microbial [None]
  - Recalled product administered [None]

NARRATIVE: CASE EVENT DATE: 20220929
